FAERS Safety Report 6490532-7 (Version None)
Quarter: 2009Q4

REPORT INFORMATION
  Report Type: 
  Country: None (occurrence: None)
  Receive Date: 20091124
  Receipt Date: 20090902
  Transmission Date: 20100525
  Serious: Yes (Other)
  Sender: FDA-Public Use
  Company Number: 288342

PATIENT
  Age: 42 Year
  Sex: Female
  Weight: 61.2 kg

DRUGS (4)
  1. HERCEPTIN [Suspect]
     Indication: BREAST CANCER
     Dates: start: 20090902
  2. TAXOTERE [Suspect]
     Indication: BREAST CANCER
     Dosage: UNK, INTRAVENOUS
     Route: 042
     Dates: start: 20090709
  3. CARBOPLATIN [Suspect]
     Indication: BREAST CANCER
     Dates: start: 20090709, end: 20090709
  4. ANTI-NAUSEA MEDICATION (ANTIEMIC NOS) [Concomitant]

REACTIONS (2)
  - FATIGUE [None]
  - HYPOTENSION [None]
